FAERS Safety Report 4767761-3 (Version None)
Quarter: 2005Q3

REPORT INFORMATION
  Report Type: 
  Country: None (occurrence: None)
  Receive Date: 20050912
  Receipt Date: 20050830
  Transmission Date: 20060218
  Serious: Yes (Hospitalization)
  Sender: FDA-Public Use
  Company Number: 2005122779

PATIENT
  Age: 1 Day
  Sex: Male

DRUGS (6)
  1. ALPRAZOLAM [Suspect]
     Indication: ILL-DEFINED DISORDER
  2. TOFRANIL [Suspect]
     Indication: ILL-DEFINED DISORDER
  3. ROHYPNOL (FLUNITRAZEPAM) [Concomitant]
  4. NITRAZEPAM [Concomitant]
  5. VEGETAMIN (CHLORPROMAZINE HYDROCHLORIDE, PHENOBARBITAL, PROMETHAZINE H [Concomitant]
  6. ANAFRANIL [Concomitant]

REACTIONS (5)
  - CONVULSION NEONATAL [None]
  - DRUG EXPOSURE DURING PREGNANCY [None]
  - FEEDING DISORDER NEONATAL [None]
  - HYPERTONIA NEONATAL [None]
  - STRIDOR [None]
